FAERS Safety Report 24318162 (Version 1)
Quarter: 2024Q3

REPORT INFORMATION
  Report Type: Spontaneous
  Country: US (occurrence: None)
  Receive Date: 20240913
  Receipt Date: 20240913
  Transmission Date: 20241017
  Serious: No
  Sender: Public
  Company Number: None

PATIENT
  Sex: Male

DRUGS (4)
  1. ENTECAVIR [Suspect]
     Active Substance: ENTECAVIR
  2. REVLIMID [Concomitant]
     Dosage: FREQUENCY : DAILY;?
     Route: 048
     Dates: start: 20240624
  3. DARATUMUMAB [Concomitant]
     Active Substance: DARATUMUMAB
  4. LENALIDOMIDE [Concomitant]
     Active Substance: LENALIDOMIDE

REACTIONS (4)
  - Hospitalisation [None]
  - Diarrhoea [None]
  - Lung infiltration [None]
  - Product prescribing issue [None]
